FAERS Safety Report 4423552-4 (Version None)
Quarter: 2004Q3

REPORT INFORMATION
  Report Type: 
  Country: None (occurrence: None)
  Receive Date: 20040805
  Receipt Date: 20040722
  Transmission Date: 20050211
  Serious: Yes (Hospitalization)
  Sender: FDA-Public Use
  Company Number: JP-JNJFOC-20040305348

PATIENT
  Age: 5 Year
  Sex: Female
  Weight: 12.7 kg

DRUGS (30)
  1. REMICADE [Suspect]
     Indication: CROHN'S DISEASE
     Dosage: SEE IMAGE
     Route: 042
     Dates: start: 20030626
  2. REMICADE [Suspect]
     Indication: CROHN'S DISEASE
     Dosage: SEE IMAGE
     Route: 042
     Dates: start: 20030814
  3. REMICADE [Suspect]
     Indication: CROHN'S DISEASE
     Dosage: SEE IMAGE
     Route: 042
     Dates: start: 20040216
  4. REMICADE [Suspect]
     Indication: CROHN'S DISEASE
     Dosage: SEE IMAGE
     Route: 042
     Dates: start: 20040228
  5. REMICADE [Suspect]
     Indication: CROHN'S DISEASE
     Dosage: SEE IMAGE
     Route: 042
     Dates: start: 20040531
  6. REMICADE [Suspect]
     Indication: CROHN'S DISEASE
     Dosage: SEE IMAGE
     Route: 042
     Dates: start: 20040608
  7. BIOFERMIN (BIOFERMIN) [Concomitant]
  8. PRENDISOLONE (PREDISOLONE) [Concomitant]
  9. WATER-SOLUBLE HYDROCHLORIDE (HYDROCORTISONE) INJECTION [Concomitant]
  10. IMURAN [Concomitant]
  11. SALAZOPYRIN (SULFASALAZINE) POWDER [Concomitant]
  12. FLAGYL (METRONIDAZOLE) POWDER [Concomitant]
  13. DEPAKENE (VALPROATE SODIUM) SYRUP [Concomitant]
  14. GASTER (FAMOTIDINE) POWDER [Concomitant]
  15. URALYT-U (URALYT-U) POWDER [Concomitant]
  16. ATARAX (HYDROXYZINE HYDROCHLORIDE) SYRUP [Concomitant]
  17. BUSCOPAN (HYOSCINE BUTYBROMIDE) INJECTION [Concomitant]
  18. VOLTAREN [Concomitant]
  19. DIAZEPAM [Concomitant]
  20. TOTAL PARENTERAL NUTRITION (POLYVINYL ALCOHOL) [Concomitant]
  21. ENTERAL NUTRITION (SOLUTIONS FOR PARENTERAL NUTRITION) [Concomitant]
  22. RHEUMATREX [Concomitant]
  23. ATARAX P (HYDROXYZINE HYDROCHLORIDE) INJECTION [Concomitant]
  24. ELENTAL (ELENTAL) [Concomitant]
  25. ZOVIRAX [Concomitant]
  26. FESIN (SACCHARATED IRON OXIDE) [Concomitant]
  27. PENTICILLIN (PHENOXYMETHYLPENICILLIN POTASSIUM) [Concomitant]
  28. ADONA (CARBAZOCHROME SODIUM SULFONATE) [Concomitant]
  29. TRANSAMIN (TRANEXAMI ACID) [Concomitant]
  30. INTRALIPID (INTRALIPID) [Concomitant]

REACTIONS (13)
  - ABNORMAL FAECES [None]
  - ALANINE AMINOTRANSFERASE INCREASED [None]
  - ASPARTATE AMINOTRANSFERASE INCREASED [None]
  - C-REACTIVE PROTEIN INCREASED [None]
  - CONDITION AGGRAVATED [None]
  - CONJUNCTIVITIS [None]
  - CROHN'S DISEASE [None]
  - DIARRHOEA [None]
  - DRUG EFFECT DECREASED [None]
  - HAEMATOCHEZIA [None]
  - HEPATIC FUNCTION ABNORMAL [None]
  - PYREXIA [None]
  - VIRAL INFECTION [None]
